FAERS Safety Report 5975189-3 (Version None)
Quarter: 2008Q4

REPORT INFORMATION
  Report Type: 
  Country: None (occurrence: None)
  Receive Date: 20081202
  Receipt Date: 20080801
  Transmission Date: 20090506
  Serious: No
  Sender: FDA-Public Use
  Company Number: US-ABBOTT-08P-163-0467561-00

PATIENT
  Sex: Female
  Weight: 76.272 kg

DRUGS (3)
  1. LUPRON DEPOT [Suspect]
     Indication: ENDOMETRIOSIS
     Route: 030
     Dates: start: 20080301
  2. LUPRON DEPOT [Suspect]
     Indication: UTERINE LEIOMYOMA
  3. NORATHINDRONE [Concomitant]
     Indication: SUPPLEMENTATION THERAPY
     Route: 048
     Dates: start: 20080301

REACTIONS (5)
  - ARTHRALGIA [None]
  - HOT FLUSH [None]
  - MOOD SWINGS [None]
  - NERVOUSNESS [None]
  - WEIGHT INCREASED [None]
